FAERS Safety Report 5239800-7 (Version None)
Quarter: 2007Q1

REPORT INFORMATION
  Report Type: 
  Country: None (occurrence: None)
  Receive Date: 20070216
  Receipt Date: 20070208
  Transmission Date: 20070707
  Serious: Yes (Other)
  Sender: FDA-Public Use
  Company Number: US-ELI_LILLY_AND_COMPANY-US200702001970

PATIENT
  Age: 87 Year
  Sex: Female

DRUGS (3)
  1. HUMAN INSULIN (RDNA ORIGIN) [Suspect]
     Indication: DIABETES MELLITUS NON-INSULIN-DEPENDENT
     Dosage: UNK, 4/D
     Dates: start: 20070102, end: 20070112
  2. GLYBURIDE [Concomitant]
     Indication: DIABETES MELLITUS NON-INSULIN-DEPENDENT
     Dosage: 10 MG, UNKNOWN
     Dates: end: 20070102
  3. GLYBURIDE [Concomitant]
     Dosage: 10 MG, UNKNOWN
     Dates: start: 20070112

REACTIONS (1)
  - CONFUSIONAL STATE [None]
